FAERS Safety Report 24449723 (Version 1)
Quarter: 2024Q4

REPORT INFORMATION
  Report Type: Spontaneous
  Country: US (occurrence: US)
  Receive Date: 20241017
  Receipt Date: 20241017
  Transmission Date: 20250115
  Serious: No
  Sender: LEO PHARM
  Company Number: US-LEO Pharma-374278

PATIENT
  Age: 69 Year
  Sex: Female

DRUGS (1)
  1. ADBRY [Suspect]
     Active Substance: TRALOKINUMAB-LDRM
     Indication: Idiopathic urticaria
     Route: 058
     Dates: start: 202406

REACTIONS (3)
  - Blister [Unknown]
  - Urticaria [Unknown]
  - Product use in unapproved indication [Unknown]
